FAERS Safety Report 9791332 (Version 3)
Quarter: 2014Q1

REPORT INFORMATION
  Report Type: Report from Study
  Country: DE (occurrence: DE)
  Receive Date: 20140101
  Receipt Date: 20140207
  Transmission Date: 20141002
  Serious: Yes (Death, Hospitalization, Other)
  Sender: FDA-Public Use
  Company Number: DE-ROCHE-1318921

PATIENT
  Age: 63 Year
  Sex: Male
  Weight: 59 kg

DRUGS (11)
  1. BEVACIZUMAB [Suspect]
     Indication: COLORECTAL CANCER METASTATIC
     Dosage: MOST RECENT DOSE ON 26/NOV/2013
     Route: 042
     Dates: start: 20131015
  2. OXALIPLATIN [Suspect]
     Indication: COLORECTAL CANCER METASTATIC
     Dosage: MOST RECENT DOSE ON 28/NOV/2013
     Route: 042
     Dates: start: 20131015
  3. LEUCOVORIN [Suspect]
     Indication: COLORECTAL CANCER METASTATIC
     Dosage: MOST RECENT DOSE ON 28/NOV/2013
     Route: 042
     Dates: start: 20131015
  4. 5-FU [Suspect]
     Indication: COLORECTAL CANCER METASTATIC
     Dosage: MOST RECENT DOSE ON 28/NOV/2013
     Route: 042
     Dates: start: 20131015
  5. ZOFRAN [Concomitant]
     Indication: VOMITING
     Route: 048
     Dates: start: 20131015
  6. FORTECORTIN [Concomitant]
     Indication: PROPHYLAXIS OF NAUSEA AND VOMITING
     Route: 048
     Dates: start: 20131015
  7. FERROSANOL DUODENAL [Concomitant]
     Indication: ANAEMIA
     Route: 048
     Dates: start: 201309
  8. PALEXIA [Concomitant]
     Indication: PAIN
     Route: 048
     Dates: start: 201309
  9. NOVAMINSULFON [Concomitant]
     Indication: ABDOMINAL PAIN UPPER
     Route: 048
     Dates: start: 20131126
  10. PANTOPRAZOL [Concomitant]
     Indication: PROPHYLAXIS
     Route: 065
     Dates: start: 20131011
  11. BISOPROLOL [Concomitant]
     Indication: HYPERTENSION
     Route: 065
     Dates: start: 2011

REACTIONS (7)
  - Intestinal perforation [Fatal]
  - Metastases to peritoneum [Not Recovered/Not Resolved]
  - Impaired gastric emptying [Not Recovered/Not Resolved]
  - Small intestinal obstruction [Not Recovered/Not Resolved]
  - Oedema [Unknown]
  - Abscess [Not Recovered/Not Resolved]
  - Small intestinal obstruction [Not Recovered/Not Resolved]
